FAERS Safety Report 13384265 (Version 3)
Quarter: 2017Q2

REPORT INFORMATION
  Report Type: Spontaneous
  Country: US (occurrence: US)
  Receive Date: 20170329
  Receipt Date: 20170619
  Transmission Date: 20170830
  Serious: Yes (Other)
  Sender: FDA-Public Use
  Company Number: US-TEVA-754899USA

PATIENT
  Age: 83 Year
  Sex: Female

DRUGS (2)
  1. DORZOLAMIDE [Suspect]
     Active Substance: DORZOLAMIDE
     Indication: GLAUCOMA
     Dates: start: 201611
  2. AMLODIPINE [Concomitant]
     Active Substance: AMLODIPINE BESYLATE

REACTIONS (7)
  - Muscle injury [Unknown]
  - Ocular myasthenia [Recovered/Resolved]
  - Strabismus [Not Recovered/Not Resolved]
  - Nerve injury [Unknown]
  - Eyelid ptosis [Recovered/Resolved]
  - Frustration tolerance decreased [Unknown]
  - Eyelid disorder [Recovered/Resolved]
